FAERS Safety Report 8235526-6 (Version None)
Quarter: 2012Q1

REPORT INFORMATION
  Report Type: 
  Country: None (occurrence: None)
  Receive Date: 20120326
  Receipt Date: 20120315
  Transmission Date: 20120608
  Serious: No
  Sender: FDA-Public Use
  Company Number: US-B.I. PHARMACEUTICALS,INC./RIDGEFIELD-2012-BP-05033BP

PATIENT
  Sex: Female

DRUGS (10)
  1. ATENOLOL [Concomitant]
     Indication: ATRIAL FIBRILLATION
     Dosage: 25 MG
  2. REGULAR INSULIN [Concomitant]
     Indication: TYPE 1 DIABETES MELLITUS
  3. SYNTHROID [Concomitant]
     Indication: HYPOTHYROIDISM
     Dosage: 25 MCG
     Dates: start: 20050101
  4. LIPITOR [Concomitant]
     Indication: PROPHYLAXIS
  5. METAXALONE [Concomitant]
     Indication: FLUID RETENTION
  6. TORSEMIDE [Concomitant]
     Indication: FLUID RETENTION
  7. PRADAXA [Suspect]
     Indication: ATRIAL FIBRILLATION
     Dosage: 12.5 MG
     Route: 048
     Dates: start: 20120314
  8. IMDUR [Concomitant]
     Indication: CARDIAC FAILURE CONGESTIVE
     Dosage: 60 MG
  9. NITROGLYCERIN [Concomitant]
     Indication: ANGINA PECTORIS
  10. OXYGEN [Concomitant]
     Indication: OXYGEN SATURATION DECREASED

REACTIONS (2)
  - NAUSEA [None]
  - COUGH [None]
